FAERS Safety Report 6588312-7 (Version None)
Quarter: 2010Q1

REPORT INFORMATION
  Report Type: 
  Country: None (occurrence: None)
  Receive Date: 20100218
  Receipt Date: 20100205
  Transmission Date: 20100710
  Serious: Yes (Other)
  Sender: FDA-Public Use
  Company Number: US-ROCHE-680234

PATIENT
  Sex: Female
  Weight: 51.7 kg

DRUGS (3)
  1. CAPECITABINE [Suspect]
     Dosage: 1500 MG AM AND 1000 MG PM FOR 21 DAYS, 7 DAYS OFF
     Route: 048
     Dates: start: 20090223, end: 20091102
  2. GEMZAR [Concomitant]
     Dosage: DAY 1 AND 8
     Dates: start: 20090114, end: 20090216
  3. ERBITUX [Concomitant]
     Dates: start: 20090310, end: 20091102

REACTIONS (1)
  - MALIGNANT NEOPLASM PROGRESSION [None]
